FAERS Safety Report 9081928 (Version 1)
Quarter: 2013Q1

REPORT INFORMATION
  Report Type: Report from Study
  Country: US (occurrence: US)
  Receive Date: 20130130
  Receipt Date: 20130130
  Transmission Date: 20140127
  Serious: No
  Sender: FDA-Public Use
  Company Number: US-ABBOTT-12P-163-0967951-00

PATIENT
  Age: 53 Year
  Sex: Female

DRUGS (21)
  1. HUMIRA 40 MG/0.8 ML PEN [Suspect]
     Indication: PSORIASIS
     Dates: start: 20120717
  2. OXYGEN [Concomitant]
     Indication: CHRONIC OBSTRUCTIVE PULMONARY DISEASE
     Dosage: 24 HOURS A DAY
  3. BYETTA [Concomitant]
     Indication: TYPE 2 DIABETES MELLITUS
  4. MORPHINE [Concomitant]
     Indication: POSTOPERATIVE ANALGESIA
  5. MORPHINE [Concomitant]
     Indication: POSTOPERATIVE ANALGESIA
     Dosage: AS NEEDED
  6. ALPRAZOLAM [Concomitant]
     Indication: ANXIETY
     Dosage: UP TO 6 TABS DAILY
     Route: 061
  7. GABAPENTIN [Concomitant]
     Indication: MYALGIA
     Dosage: AT SLEEP
  8. AMBIEN [Concomitant]
     Indication: INSOMNIA
     Dosage: AT SLEEP
  9. METFORMIN [Concomitant]
     Indication: TYPE 2 DIABETES MELLITUS
  10. ATORVASTATIN [Concomitant]
     Indication: BLOOD CHOLESTEROL INCREASED
     Dosage: 80MG DAILY
  11. IBUPROFEN [Concomitant]
     Indication: PAIN
     Dosage: 300MG DAILY
  12. HYDROXYZINE [Concomitant]
     Indication: SEASONAL ALLERGY
     Dosage: UP TO 6 TABS DAILY
  13. PROCHLORPERAZINE [Concomitant]
     Indication: ABDOMINAL DISCOMFORT
  14. LAMOTRIGINE [Concomitant]
     Indication: DEPRESSION
  15. LAMOTRIGINE [Concomitant]
     Indication: BIPOLAR DISORDER
  16. LISINOPRIL [Concomitant]
     Indication: HYPERTENSION
     Dosage: 20MG DAILY
  17. OMEPRAZOLE [Concomitant]
     Indication: BARRETT^S OESOPHAGUS
     Dosage: 40MG DAILY
  18. SERTRALINE [Concomitant]
     Indication: DEPRESSION
  19. SERTRALINE [Concomitant]
     Indication: BIPOLAR DISORDER
  20. VIT D [Concomitant]
     Indication: VITAMIN SUPPLEMENTATION
     Dosage: 2-3 TABS DAILY
  21. METHOCARBAMOL [Concomitant]
     Indication: BACK PAIN

REACTIONS (4)
  - Nausea [Recovered/Resolved]
  - Vomiting [Recovered/Resolved]
  - Diarrhoea [Recovered/Resolved]
  - Pruritus generalised [Recovered/Resolved]
